FAERS Safety Report 8030012-0 (Version None)
Quarter: 2011Q4

REPORT INFORMATION
  Report Type: 
  Country: None (occurrence: None)
  Receive Date: 20111130
  Receipt Date: 20110622
  Transmission Date: 20120403
  Serious: Yes (Hospitalization, Other)
  Sender: FDA-Public Use
  Company Number: US201106006831

PATIENT
  Age: 46 Year
  Sex: Male

DRUGS (7)
  1. BYETTA [Suspect]
     Indication: TYPE 2 DIABETES MELLITUS
     Dosage: 10 UG, BID, SUBCUTANEOUS
     Route: 058
     Dates: end: 20110518
  2. POTASSIUM CHLORIDE [Concomitant]
  3. Q10 (UBIDECARENONE) [Concomitant]
  4. PROTONIX [Concomitant]
  5. SKELAXIN [Concomitant]
  6. METFORMIN HCL [Concomitant]
  7. VICODIN [Concomitant]

REACTIONS (3)
  - PANCREATITIS ACUTE [None]
  - CHEST PAIN [None]
  - DRUG SCREEN POSITIVE [None]
